FAERS Safety Report 11918229 (Version 3)
Quarter: 2016Q2

REPORT INFORMATION
  Report Type: Report from Study
  Country: ES (occurrence: ES)
  Receive Date: 20160114
  Receipt Date: 20160406
  Transmission Date: 20160815
  Serious: Yes (Other)
  Sender: FDA-Public Use
  Company Number: ES-ROCHE-1662295

PATIENT
  Age: 53 Year
  Sex: Male
  Weight: 96 kg

DRUGS (2)
  1. BENDAMUSTINE [Suspect]
     Active Substance: BENDAMUSTINE
     Indication: B-CELL LYMPHOMA
     Route: 042
     Dates: start: 20151002, end: 20151210
  2. OBINUTUZUMAB [Suspect]
     Active Substance: OBINUTUZUMAB
     Indication: B-CELL LYMPHOMA
     Route: 042
     Dates: start: 20151002

REACTIONS (2)
  - Ophthalmic herpes zoster [Recovered/Resolved]
  - Ulcerative keratitis [Recovered/Resolved]

NARRATIVE: CASE EVENT DATE: 20151010
